FAERS Safety Report 7667929-2 (Version None)
Quarter: 2011Q3

REPORT INFORMATION
  Report Type: 
  Country: None (occurrence: None)
  Receive Date: 20110808
  Receipt Date: 20110728
  Transmission Date: 20111222
  Serious: Yes (Hospitalization)
  Sender: FDA-Public Use
  Company Number: US-BIOGENIDEC-2011BI028820

PATIENT
  Age: 53 Year
  Sex: Female

DRUGS (3)
  1. TYSABRI [Suspect]
     Indication: MULTIPLE SCLEROSIS
     Route: 042
     Dates: start: 20071112
  2. PROVIGIL [Concomitant]
     Indication: FATIGUE
  3. ADDERALL 5 [Concomitant]
     Indication: FATIGUE

REACTIONS (3)
  - HERPES ZOSTER [None]
  - WEIGHT LOSS POOR [None]
  - FATIGUE [None]
